FAERS Safety Report 24050243 (Version 6)
Quarter: 2024Q4

REPORT INFORMATION
  Report Type: Spontaneous
  Country: CA (occurrence: CA)
  Receive Date: 20240704
  Receipt Date: 20241123
  Transmission Date: 20250114
  Serious: Yes (Hospitalization, Other)
  Sender: CELLTRION
  Company Number: CA-PFIZER INC-202400201695

PATIENT

DRUGS (12)
  1. INFLECTRA [Suspect]
     Active Substance: INFLIXIMAB-DYYB
     Indication: Colitis ulcerative
     Dosage: 5 MG/KG, INDUCTION WEEKS 0, 2, 6 MAINTENANCE EVERY 8 WEEKS
     Route: 042
     Dates: start: 20240522, end: 20240604
  2. INFLECTRA [Suspect]
     Active Substance: INFLIXIMAB-DYYB
     Dosage: 5 MG/KG, WEEK 2
     Route: 042
     Dates: start: 20240604
  3. INFLECTRA [Suspect]
     Active Substance: INFLIXIMAB-DYYB
     Dosage: 10 MG/KG, REINDUCTION (INDUCTION WEEKS 0, 2, 6 MAINTENANCE EVERY 4 WEEKS)
     Route: 042
     Dates: start: 20240621
  4. INFLECTRA [Suspect]
     Active Substance: INFLIXIMAB-DYYB
     Dosage: 700 MG, WEEK 2 (REINDUCTION) (10MG/KG, REINDUCTION INDUCTION WEEKS 0, 2, 6 MAINTENANCE Q 4 WEEKS)
     Route: 042
     Dates: start: 20240704
  5. INFLECTRA [Suspect]
     Active Substance: INFLIXIMAB-DYYB
     Dosage: 10 MG/KG, REINDUCTION INDUCTION WEEKS 0, 2, 6 MAINTENANCE EVERY 4 WEEKS
     Route: 042
     Dates: start: 20240731
  6. INFLECTRA [Suspect]
     Active Substance: INFLIXIMAB-DYYB
     Dosage: 700 MG (10 MG/KG), AFTER 4 WEEKS AND 2 DAYS (PRESCRIBED EVERY 4 WEEKS)
     Route: 042
     Dates: start: 20240830
  7. INFLECTRA [Suspect]
     Active Substance: INFLIXIMAB-DYYB
     Dosage: 700 MG, 4 WEEKS (10 MG/KG, REINDUCTION INDUCTION WEEKS 0, 2, 6 MAINTENANCE Q 4 WEEKS)
     Route: 042
     Dates: start: 20240925
  8. INFLECTRA [Suspect]
     Active Substance: INFLIXIMAB-DYYB
     Dosage: 700 MG 4 WEEKS (10 MG/KG, REINDUCTION INDUCTION WEEKS 0, 2, 6 MAINTENANCE Q 4 WEEKS)
     Route: 042
     Dates: start: 20241023
  9. PREDNISONE [Concomitant]
     Active Substance: PREDNISONE
     Dosage: 60 MG, FOR 1 WEEK
     Route: 048
  10. PREDNISONE [Concomitant]
     Active Substance: PREDNISONE
     Dosage: DECREASE FROM 5 TO 10MG Q (EVERY) WEEK THEREAFTER
     Dates: start: 20240626
  11. PREDNISONE [Concomitant]
     Active Substance: PREDNISONE
     Dosage: 1 DF
  12. RINVOQ [Concomitant]
     Active Substance: UPADACITINIB
     Dosage: 1 DF

REACTIONS (4)
  - Condition aggravated [Recovered/Resolved]
  - Drug ineffective [Unknown]
  - Colitis [Unknown]
  - Off label use [Unknown]

NARRATIVE: CASE EVENT DATE: 20240101
